FAERS Safety Report 20064430 (Version 1)
Quarter: 2021Q4

REPORT INFORMATION
  Report Type: Spontaneous
  Country: US (occurrence: None)
  Receive Date: 20211112
  Receipt Date: 20211112
  Transmission Date: 20220303
  Serious: Yes (Other)
  Sender: FDA-Public Use
  Company Number: None

PATIENT
  Age: 41 Year
  Sex: Female

DRUGS (2)
  1. VENOFER [Suspect]
     Active Substance: IRON SUCROSE
  2. VENOFER [Concomitant]
     Active Substance: IRON SUCROSE

REACTIONS (3)
  - Pruritus [None]
  - Hypertension [None]
  - Urticaria [None]

NARRATIVE: CASE EVENT DATE: 20211025
